FAERS Safety Report 9684913 (Version 1)
Quarter: 2013Q4

REPORT INFORMATION
  Report Type: Spontaneous
  Country: US (occurrence: US)
  Receive Date: 20131113
  Receipt Date: 20131113
  Transmission Date: 20140711
  Serious: No
  Sender: FDA-Public Use
  Company Number: US-009507513-1311USA002001

PATIENT
  Sex: Female

DRUGS (1)
  1. EMEND FOR INJECTION [Suspect]
     Dosage: UNK
     Route: 042

REACTIONS (3)
  - Infusion site pain [Not Recovered/Not Resolved]
  - Wrong technique in drug usage process [Unknown]
  - Underdose [Unknown]
